FAERS Safety Report 5913155-4 (Version None)
Quarter: 2008Q4

REPORT INFORMATION
  Report Type: 
  Country: None (occurrence: None)
  Receive Date: 20081009
  Receipt Date: 20080929
  Transmission Date: 20090506
  Serious: Yes (Hospitalization)
  Sender: FDA-Public Use
  Company Number: AU-JNJFOC-20080800019

PATIENT
  Sex: Male
  Weight: 69 kg

DRUGS (10)
  1. TMC125 [Suspect]
     Route: 048
  2. TMC125 [Suspect]
     Indication: HIV INFECTION
     Route: 048
  3. BACTRIM DS [Concomitant]
     Indication: PNEUMOCYSTIS JIROVECI PNEUMONIA
     Route: 048
  4. RALTEGRAVIR [Concomitant]
     Indication: HIV INFECTION
     Route: 048
  5. TRUVADA [Concomitant]
     Indication: HIV INFECTION
     Route: 048
  6. ACEON [Concomitant]
     Indication: HYPERTENSION
     Route: 048
  7. MINOXIDIL [Concomitant]
     Indication: HYPERTENSION
     Route: 048
  8. ATENOLOL [Concomitant]
     Indication: HYPERTENSION
     Route: 048
  9. SPIRONOLACTONE [Concomitant]
     Indication: ASCITES
     Route: 048
  10. AZITHROMYCIN [Concomitant]
     Indication: PROPHYLAXIS
     Route: 048

REACTIONS (1)
  - MYOPERICARDITIS [None]
